FAERS Safety Report 8399685-7 (Version None)
Quarter: 2012Q2

REPORT INFORMATION
  Report Type: 
  Country: None (occurrence: None)
  Receive Date: 20120531
  Receipt Date: 20120523
  Transmission Date: 20120825
  Serious: Yes (Other)
  Sender: FDA-Public Use
  Company Number: US-JNJFOC-20120520743

PATIENT
  Sex: Female

DRUGS (14)
  1. EFFIENT [Suspect]
     Indication: CORONARY REVASCULARISATION
     Dosage: MAINTENANCE DOSE
     Route: 065
     Dates: start: 20120501
  2. REOPRO [Suspect]
     Indication: VASCULAR OPERATION
     Route: 042
     Dates: start: 20120501
  3. EFFIENT [Suspect]
     Indication: PERCUTANEOUS CORONARY INTERVENTION
     Dosage: MAINTENANCE DOSE
     Route: 065
     Dates: start: 20120501
  4. EFFIENT [Suspect]
     Dosage: MAINTENANCE DOSE
     Route: 065
     Dates: start: 20120501
  5. EFFIENT [Suspect]
     Dosage: LOADING DOSE
     Route: 065
     Dates: start: 20120501
  6. EFFIENT [Suspect]
     Indication: ACUTE CORONARY SYNDROME
     Dosage: LOADING DOSE
     Route: 065
     Dates: start: 20120501
  7. ANGIOMAX [Suspect]
     Indication: CORONARY REVASCULARISATION
     Route: 042
     Dates: start: 20120501
  8. EFFIENT [Suspect]
     Indication: ACUTE MYOCARDIAL INFARCTION
     Dosage: LOADING DOSE
     Route: 065
     Dates: start: 20120501
  9. REOPRO [Suspect]
     Indication: PERCUTANEOUS CORONARY INTERVENTION
     Route: 042
     Dates: start: 20120501
  10. EFFIENT [Suspect]
     Dosage: MAINTENANCE DOSE
     Route: 065
     Dates: start: 20120501
  11. EFFIENT [Suspect]
     Dosage: LOADING DOSE
     Route: 065
     Dates: start: 20120501
  12. HEPARIN [Suspect]
     Indication: PERCUTANEOUS CORONARY INTERVENTION
     Route: 042
     Dates: start: 20120501
  13. HEPARIN [Suspect]
     Indication: VASCULAR OPERATION
     Route: 042
     Dates: start: 20120501
  14. ANGIOMAX [Suspect]
     Indication: ACUTE MYOCARDIAL INFARCTION
     Route: 042
     Dates: start: 20120501

REACTIONS (1)
  - PLATELET FUNCTION TEST ABNORMAL [None]
